FAERS Safety Report 16446770 (Version 1)
Quarter: 2019Q2

REPORT INFORMATION
  Report Type: Spontaneous
  Country: GB (occurrence: GB)
  Receive Date: 20190618
  Receipt Date: 20190618
  Transmission Date: 20190711
  Serious: Yes (Life-Threatening, Hospitalization, Other)
  Sender: FDA-Public Use
  Company Number: GB-GILEAD-2019-0413869

PATIENT
  Age: 56 Year
  Sex: Female

DRUGS (2)
  1. DEXAMETHASONE. [Concomitant]
     Active Substance: DEXAMETHASONE
  2. YESCARTA [Suspect]
     Active Substance: AXICABTAGENE CILOLEUCEL
     Indication: PRODUCT USED FOR UNKNOWN INDICATION
     Dosage: 2
     Route: 065

REACTIONS (3)
  - Intestinal perforation [Unknown]
  - Neurotoxicity [Unknown]
  - Cytokine release syndrome [Unknown]
